FAERS Safety Report 19071003 (Version 1)
Quarter: 2021Q1

REPORT INFORMATION
  Report Type: Spontaneous
  Country: FR (occurrence: FR)
  Receive Date: 20210330
  Receipt Date: 20210330
  Transmission Date: 20210420
  Serious: Yes (Hospitalization, Other)
  Sender: FDA-Public Use
  Company Number: FR-AUROBINDO-AUR-APL-2021-011957

PATIENT
  Age: 57 Year
  Sex: Male

DRUGS (2)
  1. LEVOFLOXACIN ARROW 5 MG/ML SOLUTION FOR INFUSION [Suspect]
     Active Substance: LEVOFLOXACIN
     Indication: BRONCHITIS
     Dosage: 1000 MILLIGRAM, ONCE A DAY
     Route: 042
     Dates: start: 20210221, end: 20210301
  2. OLIMEL [Suspect]
     Active Substance: AMINO ACIDS\DEXTROSE\SOYBEAN OIL
     Indication: PARENTERAL NUTRITION
     Dosage: 1 DOSAGE FORM, ONCE A DAY
     Route: 042
     Dates: start: 20210228, end: 20210301

REACTIONS (2)
  - Cholestasis [Recovering/Resolving]
  - Transaminases increased [Recovering/Resolving]

NARRATIVE: CASE EVENT DATE: 20210301
